FAERS Safety Report 17544348 (Version 1)
Quarter: 2020Q1

REPORT INFORMATION
  Report Type: Report from Study
  Country: US (occurrence: US)
  Receive Date: 20200316
  Receipt Date: 20200316
  Transmission Date: 20200409
  Serious: Yes (Hospitalization)
  Sender: FDA-Public Use
  Company Number: US-BAYER-2020-042692

PATIENT
  Age: 75 Year
  Sex: Male
  Weight: 84.35 kg

DRUGS (2)
  1. NEXAVAR [Suspect]
     Active Substance: SORAFENIB
     Indication: THYROID CANCER
     Dosage: 200 MG, BID
     Route: 048
  2. LENVIMA [Concomitant]
     Active Substance: LENVATINIB

REACTIONS (9)
  - Diarrhoea [Recovered/Resolved]
  - Oral mucosal blistering [Recovered/Resolved]
  - Chills [Recovered/Resolved]
  - Dehydration [Recovered/Resolved]
  - Fluid retention [Unknown]
  - Constipation [Unknown]
  - Decreased appetite [Recovered/Resolved]
  - Headache [Recovered/Resolved]
  - Nausea [Unknown]
